FAERS Safety Report 6446223-1 (Version None)
Quarter: 2009Q4

REPORT INFORMATION
  Report Type: 
  Country: None (occurrence: None)
  Receive Date: 20091119
  Receipt Date: 20091110
  Transmission Date: 20100525
  Serious: Yes (Hospitalization)
  Sender: FDA-Public Use
  Company Number: IN-WYE-H12004209

PATIENT
  Sex: Male
  Weight: 70 kg

DRUGS (14)
  1. TEMSIROLIMUS [Suspect]
     Indication: RENAL CELL CARCINOMA
     Route: 042
     Dates: start: 20090807, end: 20091105
  2. DOMPERIDONE [Concomitant]
  3. AMLODIPINE BESILATE [Concomitant]
     Indication: HYPERTENSION
     Dosage: DOSE NOT PROVIDED
     Dates: start: 20091022
  4. GLIMEPIRIDE [Concomitant]
     Indication: DIABETES MELLITUS
     Dosage: NOT PROVIDED
     Dates: start: 20090827
  5. PANTODAC [Concomitant]
  6. VOGLIBOSE [Concomitant]
  7. ASCORBIC ACID/ERGOCALCIFEROL/FOLIC ACID/NICOTINAMIDE/PANTHENOL/RETINOL [Concomitant]
  8. AMITRIPTYLINE HCL [Concomitant]
  9. ULTRACET [Concomitant]
  10. ALLEGRA [Concomitant]
  11. AUGMENTIN [Concomitant]
  12. SALBUTAMOL SULFATE [Concomitant]
  13. BEVACIZUMAB [Concomitant]
     Indication: RENAL CELL CARCINOMA
     Route: 042
     Dates: start: 20090807, end: 20091105
  14. GLIPIZIDE [Concomitant]

REACTIONS (2)
  - FATIGUE [None]
  - RESPIRATORY TRACT INFECTION [None]
